FAERS Safety Report 5642395-7 (Version None)
Quarter: 2008Q1

REPORT INFORMATION
  Report Type: 
  Country: None (occurrence: None)
  Receive Date: 20080227
  Receipt Date: 20080227
  Transmission Date: 20080703
  Serious: Yes (Disabling, Other)
  Sender: FDA-Public Use
  Company Number: None

PATIENT
  Age: 75 Year
  Sex: Female

DRUGS (5)
  1. FOSAMAX [Suspect]
     Indication: OSTEOPOROSIS
     Dosage: 10MG/DAILY  : 70MG/WK
     Dates: start: 20030101, end: 20030301
  2. FOSAMAX [Suspect]
     Indication: OSTEOPOROSIS
     Dosage: 10MG/DAILY  : 70MG/WK
     Dates: start: 20030301, end: 20050101
  3. TOPROL [Concomitant]
  4. SYNTHROID [Concomitant]
  5. NEXIUM [Concomitant]

REACTIONS (6)
  - BONE DISORDER [None]
  - OSTEOMYELITIS [None]
  - OSTEONECROSIS [None]
  - PAIN [None]
  - PERIODONTAL DISEASE [None]
  - TOOTH EXTRACTION [None]
